FAERS Safety Report 8804652 (Version 1)
Quarter: 2012Q4

REPORT INFORMATION
  Report Type: Report from Study
  Country: US (occurrence: US)
  Receive Date: 20120924
  Receipt Date: 20120924
  Transmission Date: 20130627
  Serious: Yes (Hospitalization)
  Sender: FDA-Public Use
  Company Number: US-BRISTOL-MYERS SQUIBB COMPANY-16955486

PATIENT
  Age: 79 Year
  Sex: Male
  Weight: 67 kg

DRUGS (2)
  1. CISPLATIN [Suspect]
     Indication: OESOPHAGEAL CARCINOMA
     Dates: start: 20120723, end: 20120820
  2. TAXOL [Suspect]
     Indication: OESOPHAGEAL CARCINOMA
     Dates: start: 20120723, end: 20120820

REACTIONS (6)
  - Septic shock [Recovered/Resolved]
  - Dyspnoea [Recovering/Resolving]
  - Renal failure acute [Recovering/Resolving]
  - White blood cell count decreased [Recovering/Resolving]
  - Atrial fibrillation [Recovering/Resolving]
  - Anaemia [Recovering/Resolving]
